FAERS Safety Report 20122737 (Version 1)
Quarter: 2021Q4

REPORT INFORMATION
  Report Type: Spontaneous
  Country: CA (occurrence: CA)
  Receive Date: 20211128
  Receipt Date: 20211128
  Transmission Date: 20220303
  Serious: Yes (Death)
  Sender: FDA-Public Use
  Company Number: CA-SUN PHARMACEUTICAL INDUSTRIES LTD-2021R1-318962

PATIENT
  Age: 49 Year
  Sex: Male

DRUGS (2)
  1. GEMCITABINE [Suspect]
     Active Substance: GEMCITABINE
     Indication: Hepatocellular carcinoma
     Dosage: UNK
     Route: 065
     Dates: start: 200807, end: 200901
  2. OXALIPLATIN [Suspect]
     Active Substance: OXALIPLATIN
     Indication: Hepatocellular carcinoma
     Dosage: UNK
     Route: 065
     Dates: start: 200807, end: 200901

REACTIONS (4)
  - Metastases to lung [Fatal]
  - Metastases to the mediastinum [Fatal]
  - Metastases to bone [Fatal]
  - Retroperitoneal neoplasm metastatic [Fatal]

NARRATIVE: CASE EVENT DATE: 20090201
